FAERS Safety Report 6444150-7 (Version None)
Quarter: 2009Q4

REPORT INFORMATION
  Report Type: 
  Country: None (occurrence: None)
  Receive Date: 20091118
  Receipt Date: 20091109
  Transmission Date: 20100525
  Serious: Yes (Other)
  Sender: FDA-Public Use
  Company Number: US-JNJFOC-20091103837

PATIENT
  Sex: Female

DRUGS (3)
  1. HALDOL [Suspect]
     Indication: DRUG USE FOR UNKNOWN INDICATION
     Route: 065
  2. PROZAC [Suspect]
     Indication: DRUG USE FOR UNKNOWN INDICATION
     Route: 065
  3. COGENTIN [Concomitant]
     Route: 065

REACTIONS (3)
  - BLUNTED AFFECT [None]
  - MEMORY IMPAIRMENT [None]
  - PSYCHOMOTOR RETARDATION [None]
